FAERS Safety Report 25561362 (Version 1)
Quarter: 2025Q3

REPORT INFORMATION
  Report Type: Report from Study
  Country: US (occurrence: US)
  Receive Date: 20250716
  Receipt Date: 20250716
  Transmission Date: 20251021
  Serious: No
  Sender: MALLINCKRODT
  Company Number: US-MALLINCKRODT-MNK202503806

PATIENT
  Age: 42 Year
  Sex: Female

DRUGS (1)
  1. CORTICOTROPIN [Suspect]
     Active Substance: CORTICOTROPIN
     Indication: Giant papillary conjunctivitis
     Route: 058
     Dates: start: 2025, end: 2025

REACTIONS (8)
  - Nausea [Unknown]
  - Illness [Unknown]
  - Brain fog [Unknown]
  - Irritability [Unknown]
  - Fatigue [Unknown]
  - Headache [Unknown]
  - Lethargy [Unknown]
  - Mood altered [Unknown]

NARRATIVE: CASE EVENT DATE: 20250101
